FAERS Safety Report 10453150 (Version 3)
Quarter: 2014Q4

REPORT INFORMATION
  Report Type: Spontaneous
  Country: US (occurrence: US)
  Receive Date: 20140915
  Receipt Date: 20141016
  Transmission Date: 20150528
  Serious: Yes (Other)
  Sender: FDA-Public Use
  Company Number: US-GLAXOSMITHKLINE-A1089061A

PATIENT
  Age: 72 Year
  Sex: Female
  Weight: 86.2 kg

DRUGS (2)
  1. MELPHALAN [Suspect]
     Active Substance: MELPHALAN
     Indication: PLASMA CELL MYELOMA
     Dosage: 9 UNKNOWNMG/M2 D1-4
     Route: 048
     Dates: start: 20131223, end: 20140604
  2. MELPHALAN [Suspect]
     Active Substance: MELPHALAN
     Dates: start: 20131223, end: 20140604

REACTIONS (5)
  - Colectomy total [Unknown]
  - Clostridium difficile infection [Not Recovered/Not Resolved]
  - Gastroenteritis salmonella [Not Recovered/Not Resolved]
  - Chest pain [Not Recovered/Not Resolved]
  - Diarrhoea [Not Recovered/Not Resolved]

NARRATIVE: CASE EVENT DATE: 201403
